FAERS Safety Report 5231137-5 (Version None)
Quarter: 2007Q1

REPORT INFORMATION
  Report Type: 
  Country: None (occurrence: None)
  Receive Date: 20070206
  Receipt Date: 20070131
  Transmission Date: 20070707
  Serious: Yes (Other)
  Sender: FDA-Public Use
  Company Number: JP-MERCK-0612USA04032

PATIENT
  Age: 65 Year
  Sex: Female

DRUGS (2)
  1. FOSAMAX [Suspect]
     Indication: OSTEOPOROSIS
     Route: 048
     Dates: start: 20061203, end: 20061210
  2. GLAKAY [Concomitant]
     Indication: OSTEOPOROSIS
     Route: 048
     Dates: start: 20061020

REACTIONS (1)
  - BLOOD PRESSURE INCREASED [None]
